FAERS Safety Report 25878536 (Version 3)
Quarter: 2025Q4

REPORT INFORMATION
  Report Type: Spontaneous
  Country: US (occurrence: US)
  Receive Date: 20251003
  Receipt Date: 20251209
  Transmission Date: 20260118
  Serious: Yes (Other)
  Sender: AMGEN
  Company Number: US-AMGEN-USASP2025195568

PATIENT
  Age: 53 Year
  Sex: Female

DRUGS (11)
  1. OTEZLA [Suspect]
     Active Substance: APREMILAST
     Indication: Psoriasis
     Dosage: 10 MILLIGRAM, QD
     Route: 048
     Dates: start: 20250904
  2. OTEZLA [Suspect]
     Active Substance: APREMILAST
     Dosage: 10 MILLIGRAM, BID
     Route: 048
     Dates: start: 20250905
  3. OTEZLA [Suspect]
     Active Substance: APREMILAST
     Dosage: 10 MG IN MORNING AND 20 MG IN EVENING
     Route: 048
     Dates: start: 20250906
  4. OTEZLA [Suspect]
     Active Substance: APREMILAST
     Dosage: 20 MILLIGRAM, BID
     Route: 048
     Dates: start: 20250907
  5. OTEZLA [Suspect]
     Active Substance: APREMILAST
     Dosage: 20 MG IN MORNNIG AND 30 MG IN EVENING
     Route: 048
     Dates: start: 20250908
  6. OTEZLA [Suspect]
     Active Substance: APREMILAST
     Dosage: 30 MILLIGRAM, BID
     Route: 048
     Dates: start: 20250909
  7. NALTREXONE [Concomitant]
     Active Substance: NALTREXONE
     Dosage: 3.5 MILLIGRAM
  8. AMITRIPTYLINE [Concomitant]
     Active Substance: AMITRIPTYLINE
     Dosage: 25 MILLIGRAM
  9. FLUDROCORTISONE [Concomitant]
     Active Substance: FLUDROCORTISONE
     Dosage: 0.1 MILLIGRAM
  10. OMEPRAZOLE [Concomitant]
     Active Substance: OMEPRAZOLE
     Dosage: 40 MILLIGRAM
  11. PROPRANOLOL [Concomitant]
     Active Substance: PROPRANOLOL HYDROCHLORIDE
     Dosage: 20 MILLIGRAM

REACTIONS (4)
  - Cholecystectomy [Not Recovered/Not Resolved]
  - Panic attack [Not Recovered/Not Resolved]
  - Palpitations [Not Recovered/Not Resolved]
  - Somnambulism [Not Recovered/Not Resolved]

NARRATIVE: CASE EVENT DATE: 20250901
